FAERS Safety Report 7222844-3 (Version None)
Quarter: 2011Q1

REPORT INFORMATION
  Report Type: 
  Country: None (occurrence: None)
  Receive Date: 20110106
  Receipt Date: 20110106
  Transmission Date: 20110831
  Serious: Yes (Hospitalization)
  Sender: FDA-Public Use
  Company Number: None

PATIENT
  Sex: Female
  Weight: 113.3993 kg

DRUGS (1)
  1. WARFARIN SODIUM [Suspect]
     Dosage: 5 TO 7.5 DAILY PILL

REACTIONS (1)
  - CEREBRAL HAEMORRHAGE [None]
